FAERS Safety Report 9547521 (Version 1)
Quarter: 2013Q2

REPORT INFORMATION
  Report Type: Spontaneous
  Country: US (occurrence: None)
  Receive Date: 20130606
  Receipt Date: 20130606
  Transmission Date: 20140414
  Serious: Yes (Hospitalization)
  Sender: FDA-Public Use
  Company Number: 163-POMAL-13041740

PATIENT
  Age: 42 Year
  Sex: Male
  Weight: 98.9 kg

DRUGS (4)
  1. POMALYST (POMALIDOMIDE) (CAPSULES) [Suspect]
     Indication: PRODUCT USED FOR UNKNOWN INDICATION
     Dosage: 4 MG, 21 IN 21 D, PO
     Route: 048
     Dates: start: 20130325
  2. DEXAMETHASONE [Concomitant]
  3. ASPIRIN (ACETYLSALICYLIC ACID) [Concomitant]
  4. HYDROCODONE [Concomitant]

REACTIONS (1)
  - Pneumonia [None]
